FAERS Safety Report 9813524 (Version 4)
Quarter: 2014Q1

REPORT INFORMATION
  Report Type: Spontaneous
  Country: US (occurrence: None)
  Receive Date: 20140109
  Receipt Date: 20140311
  Transmission Date: 20141002
  Serious: Yes (Other)
  Sender: FDA-Public Use
  Company Number: 2013US002925

PATIENT
  Age: 71 Year
  Sex: Female
  Weight: 56.3 kg

DRUGS (3)
  1. PONATINIB [Suspect]
     Indication: CHRONIC MYELOID LEUKAEMIA
     Dosage: 45 MG, QD, ORAL
     Route: 048
     Dates: start: 20110622, end: 20110810
  2. ASPIRIN (ACETYLSALICYLIC ACID) [Concomitant]
  3. TYLENOL (PARACETAMOL) [Concomitant]

REACTIONS (17)
  - Cerebrovascular disorder [None]
  - Hypertension [None]
  - Headache [None]
  - Balance disorder [None]
  - Feeling abnormal [None]
  - Dyspnoea [None]
  - Pulmonary hypertension [None]
  - Dizziness [None]
  - Hypertension [None]
  - Sinus bradycardia [None]
  - Atrial fibrillation [None]
  - Eyelid ptosis [None]
  - Decreased vibratory sense [None]
  - Hyporeflexia [None]
  - Astigmatism [None]
  - Dizziness [None]
  - Carotid artery stenosis [None]
